FAERS Safety Report 6164905-6 (Version None)
Quarter: 2009Q2

REPORT INFORMATION
  Report Type: 
  Country: None (occurrence: None)
  Receive Date: 20090423
  Receipt Date: 20090323
  Transmission Date: 20091009
  Serious: No
  Sender: FDA-Public Use
  Company Number: US-BAYER-200837533NA

PATIENT
  Age: 34 Year
  Sex: Female
  Weight: 50 kg

DRUGS (1)
  1. MIRENA [Suspect]
     Indication: CONTRACEPTION
     Dosage: DAILY CONTINUOUS
     Route: 015
     Dates: start: 20080313, end: 20081002

REACTIONS (3)
  - INTRA-UTERINE CONTRACEPTIVE DEVICE EXPELLED [None]
  - IUCD COMPLICATION [None]
  - VAGINAL DISCHARGE [None]
